FAERS Safety Report 18245580 (Version 1)
Quarter: 2020Q3

REPORT INFORMATION
  Report Type: Spontaneous
  Country: FR (occurrence: FR)
  Receive Date: 20200909
  Receipt Date: 20200909
  Transmission Date: 20201103
  Serious: No
  Sender: FDA-Public Use
  Company Number: FR-ALKEM LABORATORIES LIMITED-FR-ALKEM-2020-04833

PATIENT

DRUGS (2)
  1. CHOLECALCIFEROL [Suspect]
     Active Substance: CHOLECALCIFEROL
     Indication: HYPERPARATHYROIDISM SECONDARY
     Dosage: UNK
     Route: 065
  2. CINACALCET. [Suspect]
     Active Substance: CINACALCET
     Indication: HYPERPARATHYROIDISM SECONDARY
     Dosage: 30 MILLIGRAM, QD
     Route: 065

REACTIONS (1)
  - Hypocalcaemia [Unknown]
